FAERS Safety Report 8179190-3 (Version None)
Quarter: 2012Q1

REPORT INFORMATION
  Report Type: 
  Country: None (occurrence: None)
  Receive Date: 20120227
  Receipt Date: 20120215
  Transmission Date: 20120608
  Serious: Yes (Other)
  Sender: FDA-Public Use
  Company Number: 2012P1005055

PATIENT
  Age: 53 Year
  Sex: Female

DRUGS (1)
  1. CIPROFLOXACIN [Suspect]
     Indication: DACRYOCYSTITIS
     Dates: start: 20080201

REACTIONS (15)
  - BLOOD IRON DECREASED [None]
  - PROTEINURIA [None]
  - RASH PAPULAR [None]
  - MYALGIA [None]
  - RED BLOOD CELL SEDIMENTATION RATE INCREASED [None]
  - SERUM FERRITIN INCREASED [None]
  - ACUTE FEBRILE NEUTROPHILIC DERMATOSIS [None]
  - ARTHRALGIA [None]
  - LEUKOCYTOSIS [None]
  - DACRYOCYSTITIS [None]
  - INFLAMMATION [None]
  - NORMOCHROMIC NORMOCYTIC ANAEMIA [None]
  - OEDEMA [None]
  - INFLUENZA LIKE ILLNESS [None]
  - PYREXIA [None]
